FAERS Safety Report 9660362 (Version 1)
Quarter: 2013Q4

REPORT INFORMATION
  Report Type: Spontaneous
  Country: US (occurrence: US)
  Receive Date: 20131031
  Receipt Date: 20131031
  Transmission Date: 20140711
  Serious: No
  Sender: FDA-Public Use
  Company Number: US-PURDUE-USA-2011-0075686

PATIENT
  Age: 61 Year
  Sex: Female
  Weight: 68.03 kg

DRUGS (5)
  1. OXYCONTIN TABLETS [Suspect]
     Indication: FIBROMYALGIA
     Dosage: 30 MG, TID
     Dates: end: 2009
  2. TRAMADOL (SIMILAR TO NDA 21-745) [Suspect]
     Indication: FIBROMYALGIA
     Dosage: 50 MG, TID
  3. HYDROCODONE [Suspect]
     Indication: FIBROMYALGIA
  4. KLONOPIN [Concomitant]
     Indication: SLEEP DISORDER
  5. SYNTHROID [Concomitant]
     Indication: HYPOTHYROIDISM
     Dosage: 112 MCG, DAILY

REACTIONS (1)
  - Drug ineffective [Unknown]
